FAERS Safety Report 16964711 (Version 2)
Quarter: 2020Q1

REPORT INFORMATION
  Report Type: Other
  Country: DE (occurrence: DE)
  Receive Date: 20191028
  Receipt Date: 20200123
  Transmission Date: 20200409
  Serious: Yes (Death, Other)
  Sender: FDA-Public Use
  Company Number: DE-DEXPHARM-20190919

PATIENT
  Age: 46 Year
  Sex: Male

DRUGS (5)
  1. TEMAZEPAM. [Suspect]
     Active Substance: TEMAZEPAM
  2. U-47700 [Suspect]
     Active Substance: U-47700
  3. DIAZEPAM. [Suspect]
     Active Substance: DIAZEPAM
  4. NORDAZEPAM [Suspect]
     Active Substance: NORDAZEPAM
  5. LEVETIRACETAM. [Suspect]
     Active Substance: LEVETIRACETAM

REACTIONS (3)
  - Poisoning [Fatal]
  - Pulmonary oedema [Fatal]
  - Brain oedema [Fatal]
